FAERS Safety Report 8914858 (Version 2)
Quarter: 2012Q4

REPORT INFORMATION
  Report Type: Report from Study
  Country: DE (occurrence: DE)
  Receive Date: 20121119
  Receipt Date: 20121207
  Transmission Date: 20130627
  Serious: Yes (Hospitalization)
  Sender: FDA-Public Use
  Company Number: DE-ROCHE-CID000000002218781

PATIENT
  Age: 68 Year
  Sex: Female
  Weight: 60 kg

DRUGS (10)
  1. BEVACIZUMAB [Suspect]
     Indication: BREAST CANCER
     Dosage: last dose prior to sae:16/10/2012
     Route: 042
     Dates: start: 20120712, end: 20121106
  2. BEVACIZUMAB [Suspect]
     Dosage: restarted
     Route: 042
     Dates: start: 20121113
  3. MYOCET [Suspect]
     Indication: BREAST CANCER
     Dosage: last dose prior to sae:30/10/2012
     Route: 042
     Dates: start: 20120712, end: 20121106
  4. MYOCET [Suspect]
     Dosage: restarted
     Route: 042
     Dates: start: 20121113
  5. CARBOPLATIN [Suspect]
     Indication: BREAST CANCER
     Dosage: last dose prior to sae:30/10/2012
     Route: 042
     Dates: start: 20120712, end: 20121106
  6. PACLITAXEL [Suspect]
     Indication: BREAST CANCER
     Dosage: last dose prior to sae:30/10/2012
     Route: 042
     Dates: start: 20120712, end: 20121106
  7. PACLITAXEL [Suspect]
     Dosage: restarted
     Route: 042
     Dates: start: 20121113
  8. ERYPO [Concomitant]
     Dosage: 40000IE
     Route: 065
     Dates: start: 20121009
  9. CLEXANE [Concomitant]
     Dosage: dose:40 sl
     Route: 065
     Dates: start: 20121106
  10. CIPROHEXAL [Concomitant]
     Route: 065
     Dates: start: 20111104

REACTIONS (1)
  - Musculoskeletal disorder [Recovered/Resolved with Sequelae]
